FAERS Safety Report 24726805 (Version 1)
Quarter: 2024Q4

REPORT INFORMATION
  Report Type: Spontaneous
  Country: US (occurrence: None)
  Receive Date: 20241211
  Receipt Date: 20241211
  Transmission Date: 20250115
  Serious: Yes (Hospitalization)
  Sender: Public
  Company Number: None

PATIENT
  Age: 62 Year
  Sex: Female

DRUGS (14)
  1. TACROLIMUS [Suspect]
     Active Substance: TACROLIMUS
     Indication: Liver transplant
     Dosage: 2MG BID ORAL ?
     Route: 048
     Dates: start: 20241029
  2. MYCOPHENOLIC ACID [Suspect]
     Active Substance: MYCOPHENOLIC ACID
     Indication: Liver transplant
     Dosage: 500MG BID ORAL
     Route: 048
     Dates: start: 20241029, end: 20241210
  3. MORPHINE SULFATE [Concomitant]
     Active Substance: MORPHINE SULFATE
  4. ASPIRIN [Concomitant]
     Active Substance: ASPIRIN
  5. SILDENAFIL [Concomitant]
     Active Substance: SILDENAFIL
  6. ATOVAQUONE [Concomitant]
     Active Substance: ATOVAQUONE
  7. FUROSEMIDE [Concomitant]
     Active Substance: FUROSEMIDE
  8. LEXAPRO [Concomitant]
     Active Substance: ESCITALOPRAM OXALATE
  9. MAGNESIUM OXIDE [Concomitant]
     Active Substance: MAGNESIUM OXIDE
  10. ME:LATONIN [Concomitant]
  11. METHOCARBAMOL [Concomitant]
     Active Substance: METHOCARBAMOL
  12. MIDODRINE [Concomitant]
     Active Substance: MIDODRINE
  13. IMIRTAZAPINE [Concomitant]
  14. NOVOLOG FLEXPEN INJ [Concomitant]

REACTIONS (1)
  - Pneumonia [None]

NARRATIVE: CASE EVENT DATE: 20241101
